FAERS Safety Report 12499421 (Version 5)
Quarter: 2016Q3

REPORT INFORMATION
  Report Type: Report from Study
  Country: BE (occurrence: BE)
  Receive Date: 20160627
  Receipt Date: 20160719
  Transmission Date: 20161109
  Serious: Yes (Death, Hospitalization)
  Sender: FDA-Public Use
  Company Number: BE-ABBVIE-16P-013-1659664-00

PATIENT
  Age: 75 Year
  Sex: Male

DRUGS (7)
  1. SOLIFENACINE [Concomitant]
     Indication: PRODUCT USED FOR UNKNOWN INDICATION
  2. COMBODART [Concomitant]
     Active Substance: DUTASTERIDE\TAMSULOSIN
     Indication: PRODUCT USED FOR UNKNOWN INDICATION
  3. DUODOPA [Suspect]
     Active Substance: CARBIDOPA\LEVODOPA
     Dosage: AM DOSE=10ML; CD=4.1ML/H DURING 16HRS; ED=2.5ML
     Route: 050
     Dates: start: 20151126
  4. DUODOPA [Suspect]
     Active Substance: CARBIDOPA\LEVODOPA
     Indication: PARKINSON^S DISEASE
     Route: 050
     Dates: start: 20130318, end: 20130319
  5. DUODOPA [Suspect]
     Active Substance: CARBIDOPA\LEVODOPA
     Dosage: DOSAGE CONTINOUSLY MONITORED AND ADJUSTED
     Route: 050
     Dates: start: 20130319, end: 20151126
  6. DUODOPA [Suspect]
     Active Substance: CARBIDOPA\LEVODOPA
     Dosage: CD: 3.3 ML/HR
     Route: 050
     Dates: start: 20160509
  7. PROLOPA [Concomitant]
     Active Substance: BENSERAZIDE\LEVODOPA
     Indication: PRODUCT USED FOR UNKNOWN INDICATION
     Dosage: ONCE WHEN WAKING UP AT 4AM; FORM STRENGTH:200MG/50MG

REACTIONS (6)
  - Cardiac disorder [Unknown]
  - Gastrointestinal disorder [Unknown]
  - Respiratory tract infection [Fatal]
  - Device occlusion [Recovered/Resolved]
  - Surgery [Unknown]
  - Post procedural infection [Fatal]

NARRATIVE: CASE EVENT DATE: 20160707
